FAERS Safety Report 6243056-6 (Version None)
Quarter: 2009Q2

REPORT INFORMATION
  Report Type: 
  Country: None (occurrence: None)
  Receive Date: 20090624
  Receipt Date: 20090612
  Transmission Date: 20091009
  Serious: Yes (Death)
  Sender: FDA-Public Use
  Company Number: US-ELI_LILLY_AND_COMPANY-US200906003417

PATIENT
  Sex: Female

DRUGS (4)
  1. ZYPREXA [Suspect]
     Indication: SCHIZOPHRENIA
     Dosage: 10 MG, UNK
     Dates: start: 20060101
  2. CLOZAPINE [Concomitant]
     Dosage: 1000 MG, UNK
  3. DEPAKOTE [Concomitant]
  4. COGENTIN [Concomitant]

REACTIONS (2)
  - DEATH [None]
  - DRUG LEVEL INCREASED [None]
